FAERS Safety Report 9154655 (Version 1)
Quarter: 2013Q1

REPORT INFORMATION
  Report Type: Spontaneous
  Country: US (occurrence: None)
  Receive Date: 20130305
  Receipt Date: 20130305
  Transmission Date: 20140127
  Serious: Yes (Hospitalization)
  Sender: FDA-Public Use
  Company Number: None

PATIENT
  Age: 57 Year
  Sex: Female
  Weight: 73.94 kg

DRUGS (11)
  1. VELCADE [Suspect]
     Dates: start: 20121115, end: 20130214
  2. REVLIMID [Suspect]
     Dates: start: 20121115, end: 20130217
  3. ACYCLOVIR [Concomitant]
  4. ASPIRIN [Concomitant]
  5. COLACE [Concomitant]
  6. FLEXERIL [Concomitant]
  7. MORPHINE SULFATE [Concomitant]
  8. MIRALAX [Concomitant]
  9. PROMETHAZINE [Concomitant]
  10. TRIBENTOR [Concomitant]
  11. RELISTOR [Concomitant]

REACTIONS (1)
  - Abdominal pain [None]
